FAERS Safety Report 8016993-X (Version None)
Quarter: 2012Q1

REPORT INFORMATION
  Report Type: 
  Country: None (occurrence: None)
  Receive Date: 20120102
  Receipt Date: 20111228
  Transmission Date: 20120608
  Serious: Yes (Hospitalization)
  Sender: FDA-Public Use
  Company Number: PHHY2011TW113295

PATIENT
  Sex: Male
  Weight: 69.2 kg

DRUGS (1)
  1. TASIGNA [Suspect]
     Indication: CHRONIC MYELOID LEUKAEMIA
     Dosage: 800 MG, UNK
     Route: 048
     Dates: start: 20111216

REACTIONS (8)
  - URINE OUTPUT DECREASED [None]
  - ELECTROCARDIOGRAM ST SEGMENT DEPRESSION [None]
  - WHEEZING [None]
  - DECREASED APPETITE [None]
  - CARDIAC FAILURE [None]
  - ORTHOPNOEA [None]
  - ASTHENIA [None]
  - CARDIAC ENZYMES INCREASED [None]
